FAERS Safety Report 20255281 (Version 1)
Quarter: 2021Q4

REPORT INFORMATION
  Report Type: Report from Study
  Country: IN (occurrence: IN)
  Receive Date: 20211230
  Receipt Date: 20211230
  Transmission Date: 20220304
  Serious: Yes (Other)
  Sender: FDA-Public Use
  Company Number: IN-SUN PHARMACEUTICAL INDUSTRIES LTD-2021R1-322127

PATIENT
  Age: 44 Year
  Sex: Male

DRUGS (2)
  1. FENTANYL [Suspect]
     Active Substance: FENTANYL
     Indication: Pancreatitis acute
     Dosage: 200 MICROGRAM OVER 24 H
     Route: 065
  2. TRAMADOL [Suspect]
     Active Substance: TRAMADOL
     Indication: Pancreatitis acute
     Dosage: 100 MILLIGRAM OVER 24 H
     Route: 065

REACTIONS (1)
  - Therapy partial responder [Unknown]
